FAERS Safety Report 9758410 (Version 1)
Quarter: 2013Q4

REPORT INFORMATION
  Report Type: Spontaneous
  Country: US (occurrence: US)
  Receive Date: 20131216
  Receipt Date: 20131216
  Transmission Date: 20140711
  Serious: No
  Sender: FDA-Public Use
  Company Number: US-TEVA-449913USA

PATIENT
  Age: 71 Year
  Sex: Male
  Weight: 88.53 kg

DRUGS (5)
  1. AZILECT [Suspect]
     Indication: PARKINSON^S DISEASE
     Dates: start: 20131018, end: 20131108
  2. FLOMAX [Concomitant]
     Indication: BENIGN PROSTATIC HYPERPLASIA
  3. DEXILANT (DEXLANSOPRAZOLE) [Concomitant]
     Indication: GASTROOESOPHAGEAL REFLUX DISEASE
  4. BABY ASPIRIN [Concomitant]
     Indication: PROPHYLAXIS
  5. CELEBREX [Concomitant]
     Indication: ARTHRITIS

REACTIONS (4)
  - Feeling abnormal [Not Recovered/Not Resolved]
  - Gait disturbance [Not Recovered/Not Resolved]
  - Dizziness [Not Recovered/Not Resolved]
  - Asthenia [Not Recovered/Not Resolved]
